FAERS Safety Report 17992099 (Version 18)
Quarter: 2024Q4

REPORT INFORMATION
  Report Type: Spontaneous
  Country: US (occurrence: US)
  Receive Date: 20200708
  Receipt Date: 20241010
  Transmission Date: 20250115
  Serious: Yes (Hospitalization, Other)
  Sender: PFIZER
  Company Number: US-PFIZER INC-2020260177

PATIENT
  Age: 69 Year
  Sex: Female
  Weight: 56.7 kg

DRUGS (1)
  1. XELJANZ XR [Suspect]
     Active Substance: TOFACITINIB CITRATE
     Indication: Arthritis
     Dosage: 11 MG, DAILY
     Route: 048

REACTIONS (7)
  - Cerebrovascular accident [Not Recovered/Not Resolved]
  - Arthritis infective [Unknown]
  - Memory impairment [Not Recovered/Not Resolved]
  - Fatigue [Unknown]
  - Thinking abnormal [Unknown]
  - Confusional state [Unknown]
  - Bradykinesia [Unknown]

NARRATIVE: CASE EVENT DATE: 20200101
